FAERS Safety Report 4527808-6 (Version None)
Quarter: 2004Q4

REPORT INFORMATION
  Report Type: 
  Country: None (occurrence: None)
  Receive Date: 20041215
  Receipt Date: 20041203
  Transmission Date: 20050328
  Serious: Yes (Hospitalization)
  Sender: FDA-Public Use
  Company Number: SE-JNJFOC-20041201306

PATIENT
  Age: 75 Year
  Sex: Male

DRUGS (12)
  1. HALDOL [Suspect]
     Indication: REACTIVE PSYCHOSIS
     Route: 049
  2. RISPERDAL [Suspect]
     Indication: DRUG USE FOR UNKNOWN INDICATION
     Route: 049
  3. CITALOPRAM [Suspect]
     Indication: DRUG USE FOR UNKNOWN INDICATION
     Route: 049
  4. OXASCAND [Concomitant]
  5. HEMINEVRIN [Concomitant]
  6. SELOKEN [Concomitant]
  7. MOVICOL [Concomitant]
     Route: 049
  8. MOVICOL [Concomitant]
     Route: 049
  9. MOVICOL [Concomitant]
     Route: 049
  10. MOVICOL [Concomitant]
     Route: 049
  11. ASPIRIN [Concomitant]
  12. ZOPIKLON [Concomitant]

REACTIONS (2)
  - CHOLESTASIS [None]
  - HEPATITIS CHOLESTATIC [None]
